FAERS Safety Report 17845902 (Version 1)
Quarter: 2020Q2

REPORT INFORMATION
  Report Type: Spontaneous
  Country: US (occurrence: US)
  Receive Date: 20200601
  Receipt Date: 20200601
  Transmission Date: 20200714
  Serious: Yes (Hospitalization, Other)
  Sender: FDA-Public Use
  Company Number: US-IPCA LABORATORIES LIMITED-IPC-2020-US-001724

PATIENT

DRUGS (1)
  1. HYDROXYCHLOROQUINE [Suspect]
     Active Substance: HYDROXYCHLOROQUINE
     Indication: PRODUCT USED FOR UNKNOWN INDICATION
     Dosage: APPROXIMATELY 10-11 GRAM
     Route: 048

REACTIONS (5)
  - Hypotension [Recovered/Resolved]
  - Intentional overdose [Unknown]
  - Hypokalaemia [Recovered/Resolved]
  - Electrocardiogram QRS complex prolonged [Recovered/Resolved]
  - Electrocardiogram QT prolonged [Recovered/Resolved]
